FAERS Safety Report 17517943 (Version 1)
Quarter: 2020Q1

REPORT INFORMATION
  Report Type: Spontaneous
  Country: FR (occurrence: FR)
  Receive Date: 20200309
  Receipt Date: 20200309
  Transmission Date: 20200409
  Serious: Yes (Congenital Anomaly, Other)
  Sender: FDA-Public Use
  Company Number: FR-GLAXOSMITHKLINE-FR2020039479

PATIENT
  Sex: Male
  Weight: 3.29 kg

DRUGS (1)
  1. DICLOFENAC [Suspect]
     Active Substance: DICLOFENAC
     Indication: PRODUCT USED FOR UNKNOWN INDICATION
     Dosage: 3 DF, QD
     Route: 064
     Dates: start: 201912, end: 201912

REACTIONS (2)
  - Foetal exposure during pregnancy [Unknown]
  - Ductus arteriosus premature closure [Recovered/Resolved with Sequelae]

NARRATIVE: CASE EVENT DATE: 201912
